FAERS Safety Report 4850653-9 (Version None)
Quarter: 2005Q4

REPORT INFORMATION
  Report Type: 
  Country: None (occurrence: None)
  Receive Date: 20051212
  Receipt Date: 20050228
  Transmission Date: 20060501
  Serious: No
  Sender: FDA-Public Use
  Company Number: US-BRISTOL-MYERS SQUIBB COMPANY-12878674

PATIENT
  Age: 80 Year
  Sex: Female
  Weight: 52 kg

DRUGS (2)
  1. CHOLESTYRAMINE [Suspect]
     Indication: HYPERLIPIDAEMIA
     Route: 048
     Dates: start: 20050201
  2. SYNTHROID [Concomitant]

REACTIONS (1)
  - CONSTIPATION [None]
